FAERS Safety Report 6565105-8 (Version None)
Quarter: 2010Q1

REPORT INFORMATION
  Report Type: 
  Country: None (occurrence: None)
  Receive Date: 20100201
  Receipt Date: 20100129
  Transmission Date: 20100710
  Serious: Yes (Other)
  Sender: FDA-Public Use
  Company Number: A0832503A

PATIENT
  Age: 10 Year
  Sex: Female

DRUGS (2)
  1. ADVAIR DISKUS 100/50 [Suspect]
     Indication: ASTHMA
     Dosage: 1PUFF TWICE PER DAY
     Route: 055
     Dates: start: 20080102
  2. UNKNOWN [Concomitant]

REACTIONS (3)
  - ASTHMA [None]
  - OFF LABEL USE [None]
  - PRODUCT QUALITY ISSUE [None]
